FAERS Safety Report 5500518-4 (Version None)
Quarter: 2007Q4

REPORT INFORMATION
  Report Type: 
  Country: None (occurrence: None)
  Receive Date: 20071029
  Receipt Date: 20071019
  Transmission Date: 20080405
  Serious: Yes (Hospitalization, Disabling)
  Sender: FDA-Public Use
  Company Number: CH-ELI_LILLY_AND_COMPANY-CH200710004753

PATIENT
  Age: 33 Year
  Sex: Male
  Weight: 72 kg

DRUGS (4)
  1. FLUCTINE [Suspect]
     Indication: DEPRESSION
     Dosage: 20 MG, 2/D
     Route: 048
     Dates: start: 20070409
  2. REMERON [Interacting]
     Indication: DEPRESSION
     Dosage: 30 MG, DAILY (1/D)
     Dates: start: 20070503
  3. APROVEL [Concomitant]
     Indication: ESSENTIAL HYPERTENSION
     Dosage: 150 MG, DAILY (1/D)
     Route: 048
     Dates: start: 20060101
  4. XANAX [Concomitant]
     Indication: DEPRESSION
     Dosage: 1 MG, 2/D
     Route: 048
     Dates: start: 20040101

REACTIONS (3)
  - COSTOCHONDRITIS [None]
  - DRUG INTERACTION [None]
  - SEROTONIN SYNDROME [None]
